FAERS Safety Report 6130619-1 (Version None)
Quarter: 2009Q1

REPORT INFORMATION
  Report Type: 
  Country: None (occurrence: None)
  Receive Date: 20090325
  Receipt Date: 20090318
  Transmission Date: 20090719
  Serious: Yes (Death)
  Sender: FDA-Public Use
  Company Number: US-CELGENEUS-163-21880-08121531

PATIENT
  Sex: Female

DRUGS (3)
  1. REVLIMID [Suspect]
     Indication: MULTIPLE MYELOMA
     Route: 048
     Dates: start: 20080501, end: 20080604
  2. REVLIMID [Suspect]
     Route: 048
     Dates: start: 20080201, end: 20080401
  3. REVLIMID [Suspect]
     Route: 048
     Dates: start: 20080401, end: 20080501

REACTIONS (1)
  - MULTIPLE MYELOMA [None]
